FAERS Safety Report 13986734 (Version 2)
Quarter: 2022Q1

REPORT INFORMATION
  Report Type: Spontaneous
  Country: US (occurrence: US)
  Receive Date: 20170919
  Receipt Date: 20220104
  Transmission Date: 20220423
  Serious: No
  Sender: FDA-Public Use
  Company Number: US-GLENMARK PHARMACEUTICALS-2016GMK025379

PATIENT

DRUGS (13)
  1. CLOTRIMAZOLE [Suspect]
     Active Substance: CLOTRIMAZOLE
     Indication: Rash
     Dosage: UNK UNK, OD
     Route: 061
  2. CLOTRIMAZOLE [Suspect]
     Active Substance: CLOTRIMAZOLE
     Indication: Fungal infection
  3. BETAMETHASONE [Concomitant]
     Active Substance: BETAMETHASONE
     Indication: Product used for unknown indication
     Dosage: UNK
     Route: 065
  4. NEXIUM                             /01479302/ [Concomitant]
     Indication: Gastrooesophageal reflux disease
     Dosage: UNK
     Route: 048
  5. CLONIDINE [Concomitant]
     Active Substance: CLONIDINE
     Indication: Blood pressure abnormal
     Dosage: UNK
     Route: 048
  6. LOSARTAN [Concomitant]
     Active Substance: LOSARTAN
     Indication: Blood pressure abnormal
     Dosage: UNK
     Route: 048
  7. DULOXETINE [Concomitant]
     Active Substance: DULOXETINE
     Indication: Depression
     Dosage: UNK MG, UNK
     Route: 048
  8. CELECOXIB [Concomitant]
     Active Substance: CELECOXIB
     Indication: Arthritis
     Dosage: UNK
     Route: 048
  9. XARELTO [Concomitant]
     Active Substance: RIVAROXABAN
     Indication: Thrombosis
     Dosage: UNK
     Route: 048
  10. SPIRIVA [Concomitant]
     Active Substance: TIOTROPIUM BROMIDE MONOHYDRATE
     Indication: Chronic obstructive pulmonary disease
     Dosage: UNK
     Route: 048
  11. SYMBICORT [Concomitant]
     Active Substance: BUDESONIDE\FORMOTEROL FUMARATE DIHYDRATE
     Indication: Chronic obstructive pulmonary disease
     Dosage: UNK
     Route: 048
  12. VENTOLIN [Concomitant]
     Active Substance: ALBUTEROL SULFATE
     Indication: Chronic obstructive pulmonary disease
     Dosage: UNK
     Route: 048
  13. BRIMONIDINE [Concomitant]
     Active Substance: BRIMONIDINE TARTRATE
     Indication: Glaucoma
     Dosage: 1-2 DROPS
     Route: 047

REACTIONS (4)
  - Limb injury [Recovered/Resolved]
  - Product package associated injury [Recovered/Resolved]
  - Intentional underdose [Unknown]
  - Product container issue [Unknown]
